FAERS Safety Report 14537658 (Version 2)
Quarter: 2018Q1

REPORT INFORMATION
  Report Type: Report from Study
  Country: US (occurrence: US)
  Receive Date: 20180215
  Receipt Date: 20180222
  Transmission Date: 20180509
  Serious: No
  Sender: FDA-Public Use
  Company Number: US-ASTRAZENECA-2018SE16900

PATIENT
  Age: 27351 Day
  Sex: Female
  Weight: 100.8 kg

DRUGS (13)
  1. ESOMEPRAZOLE [Concomitant]
     Active Substance: ESOMEPRAZOLE
     Route: 048
     Dates: start: 20171109
  2. SENNOSIDES. [Concomitant]
     Active Substance: SENNOSIDES
     Route: 048
     Dates: start: 20170306
  3. ASCORBIC ACID. [Concomitant]
     Active Substance: ASCORBIC ACID
     Route: 048
     Dates: start: 20160922
  4. VITAMIN-B COMPLEX [Concomitant]
     Route: 065
     Dates: start: 20160922
  5. VITAMIN D [Concomitant]
     Active Substance: CHOLECALCIFEROL
     Dosage: 2000 UNITS
     Route: 048
     Dates: start: 20060101
  6. FLUTICASONE PROPIONATE. [Concomitant]
     Active Substance: FLUTICASONE PROPIONATE
     Dosage: 50 MCG/ACT SUSPENSION 2 SPRAYS
     Route: 065
     Dates: start: 20170407
  7. LEVOTHYROXINE SODIUM. [Concomitant]
     Active Substance: LEVOTHYROXINE SODIUM
     Route: 048
     Dates: start: 20110101
  8. CYANOCOBALAMIN. [Concomitant]
     Active Substance: CYANOCOBALAMIN
     Route: 048
     Dates: start: 20170808
  9. COLACE [Concomitant]
     Active Substance: DOCUSATE SODIUM
     Route: 048
     Dates: start: 20170313
  10. RESTASIS [Concomitant]
     Active Substance: CYCLOSPORINE
     Dosage: 0.05 % 1 DROP BOTH EYES Q 12 HRS
     Route: 065
     Dates: start: 20180123
  11. CALCIUM-MAGNESIUM [Concomitant]
     Active Substance: CALCIUM\MAGNESIUM
     Dosage: 1000/500 MG
     Route: 048
     Dates: start: 20160922
  12. DURVALUMAB. [Suspect]
     Active Substance: DURVALUMAB
     Indication: NON-SMALL CELL LUNG CANCER
     Route: 042
     Dates: start: 20170404, end: 20180102
  13. LOTEPREDNOL [Concomitant]
     Active Substance: LOTEPREDNOL
     Dosage: 0.5 % SUSPENSION 1 DROP BOTH EYES
     Route: 047
     Dates: start: 20171013

REACTIONS (1)
  - Ulcerative keratitis [Recovered/Resolved]

NARRATIVE: CASE EVENT DATE: 20180119
